FAERS Safety Report 6276614-3 (Version None)
Quarter: 2009Q3

REPORT INFORMATION
  Report Type: 
  Country: None (occurrence: None)
  Receive Date: 20090722
  Receipt Date: 20080612
  Transmission Date: 20100115
  Serious: No
  Sender: FDA-Public Use
  Company Number: US-BRISTOL-MYERS SQUIBB COMPANY-14226054

PATIENT
  Sex: Female

DRUGS (2)
  1. COUMADIN [Suspect]
     Dosage: STARTED AS 5MG FROM UNKNOWN TO MAY08 AND INCREASED TO 6MG FROM MAY08 TO UNKNOWN
     Dates: start: 20080501
  2. LOVENOX [Suspect]
     Indication: PROPHYLAXIS
     Dates: start: 20080501

REACTIONS (2)
  - DYSURIA [None]
  - INJECTION SITE HAEMATOMA [None]
